FAERS Safety Report 5898145-2 (Version None)
Quarter: 2008Q3

REPORT INFORMATION
  Report Type: 
  Country: None (occurrence: None)
  Receive Date: 20080925
  Receipt Date: 20080918
  Transmission Date: 20090109
  Serious: Yes (Other)
  Sender: FDA-Public Use
  Company Number: DE-BAYER-200824796GPV

PATIENT
  Age: 40 Year
  Sex: Female

DRUGS (1)
  1. BETAFERON [Suspect]
     Indication: MULTIPLE SCLEROSIS
     Route: 058
     Dates: start: 20051101

REACTIONS (4)
  - ARTHROPATHY [None]
  - BLOOD SMEAR TEST ABNORMAL [None]
  - MYELOFIBROSIS [None]
  - SPLENOMEGALY [None]
